FAERS Safety Report 6444612-2 (Version None)
Quarter: 2009Q4

REPORT INFORMATION
  Report Type: 
  Country: None (occurrence: None)
  Receive Date: 20091118
  Receipt Date: 20091103
  Transmission Date: 20100525
  Serious: Yes (Hospitalization)
  Sender: FDA-Public Use
  Company Number: US-SANOFI-AVENTIS-200917745US

PATIENT
  Age: 81 Year
  Sex: Female
  Weight: 71.21 kg

DRUGS (3)
  1. OPTICLICK [Suspect]
  2. INSULIN GLARGINE [Suspect]
     Dosage: DATE OF 22-OCT-2009 GIVEN AS A STOP DATE (BID DOSING ?) DOSE:55 UNIT(S)
     Route: 058
  3. NO MENTION OF CONCOMITANT MEDICATIONS [Concomitant]

REACTIONS (3)
  - BLOOD GLUCOSE DECREASED [None]
  - BLOOD GLUCOSE INCREASED [None]
  - VERTIGO [None]
